FAERS Safety Report 9233947 (Version 1)
Quarter: 2013Q2

REPORT INFORMATION
  Report Type: Spontaneous
  Country: US (occurrence: US)
  Receive Date: 20130416
  Receipt Date: 20130416
  Transmission Date: 20140414
  Serious: No
  Sender: FDA-Public Use
  Company Number: US-BANPHARM-20120390

PATIENT
  Age: 20 Year
  Sex: Female
  Weight: 68.04 kg

DRUGS (2)
  1. ALEVE LIQUID GELS 220MG [Suspect]
     Dosage: 8 DF AT ONCE
     Route: 048
     Dates: start: 20121120, end: 20121120
  2. PROZAC [Concomitant]

REACTIONS (2)
  - Abdominal pain upper [Not Recovered/Not Resolved]
  - Incorrect dose administered [Unknown]
